FAERS Safety Report 20306815 (Version 1)
Quarter: 2022Q1

REPORT INFORMATION
  Report Type: Report from Study
  Country: CO (occurrence: CO)
  Receive Date: 20220106
  Receipt Date: 20220106
  Transmission Date: 20220423
  Serious: Yes (Other)
  Sender: FDA-Public Use
  Company Number: CO-ABBVIE-21K-036-3991260-00

PATIENT
  Age: 70 Year
  Sex: Female

DRUGS (4)
  1. HUMIRA [Suspect]
     Active Substance: ADALIMUMAB
     Indication: Rheumatoid arthritis
     Route: 058
     Dates: start: 20140110
  2. HUMIRA [Suspect]
     Active Substance: ADALIMUMAB
     Indication: Rheumatoid arthritis
     Route: 058
     Dates: end: 20210410
  3. HUMIRA [Suspect]
     Active Substance: ADALIMUMAB
     Route: 058
     Dates: start: 2021, end: 20211102
  4. ACETAMINOPHEN [Concomitant]
     Active Substance: ACETAMINOPHEN
     Indication: Product used for unknown indication
     Route: 048
     Dates: start: 202111

REACTIONS (8)
  - Amnesia [Not Recovered/Not Resolved]
  - Osteoarthritis [Not Recovered/Not Resolved]
  - Cough [Recovering/Resolving]
  - Insomnia [Not Recovered/Not Resolved]
  - Bone pain [Not Recovered/Not Resolved]
  - Pain in extremity [Not Recovered/Not Resolved]
  - Influenza [Recovered/Resolved]
  - Therapeutic product effect incomplete [Recovering/Resolving]

NARRATIVE: CASE EVENT DATE: 20200701
